FAERS Safety Report 4809257-6 (Version None)
Quarter: 2005Q4

REPORT INFORMATION
  Report Type: 
  Country: None (occurrence: None)
  Receive Date: 20051021
  Receipt Date: 20051013
  Transmission Date: 20060501
  Serious: Yes (Other)
  Sender: FDA-Public Use
  Company Number: 2005RR-00920

PATIENT
  Age: 40 Year
  Sex: Male

DRUGS (8)
  1. IBUPROFEN [Suspect]
     Indication: NECK PAIN
     Dosage: 600 MG, TID, ORAL
     Route: 048
     Dates: start: 20050801, end: 20050929
  2. DICLOFENAC SODIUM [Suspect]
     Indication: NECK PAIN
     Dosage: 100 MG, QD, RECTAL
     Route: 054
     Dates: start: 20050919, end: 20050920
  3. MIRTAZAPINE [Concomitant]
  4. LEVOTHYROXINE [Concomitant]
  5. PROMETHAZINE HYDROCHLORIDE [Concomitant]
  6. ZOPICLONE [Concomitant]
  7. NAFTIDROFURYL [Concomitant]
  8. CHLORPROMAZINE [Concomitant]

REACTIONS (1)
  - HAEMATEMESIS [None]
